FAERS Safety Report 7491160-7 (Version None)
Quarter: 2011Q2

REPORT INFORMATION
  Report Type: 
  Country: None (occurrence: None)
  Receive Date: 20110519
  Receipt Date: 20110509
  Transmission Date: 20111010
  Serious: Yes (Other)
  Sender: FDA-Public Use
  Company Number: JP-JNJFOC-20110410767

PATIENT
  Age: 67 Year
  Sex: Male

DRUGS (7)
  1. INVEGA [Suspect]
     Route: 048
     Dates: start: 20110325, end: 20110412
  2. ASPIRIN [Concomitant]
     Route: 048
  3. SILECE [Concomitant]
     Route: 048
  4. HIBERNA [Concomitant]
     Route: 048
  5. INVEGA [Suspect]
     Indication: SCHIZOPHRENIA
     Route: 048
     Dates: start: 20110128, end: 20110324
  6. DEPAKENE [Concomitant]
     Route: 048
  7. AMARYL [Concomitant]
     Route: 048

REACTIONS (2)
  - ELECTROCARDIOGRAM QT PROLONGED [None]
  - CHEST DISCOMFORT [None]
